FAERS Safety Report 12454770 (Version 1)
Quarter: 2016Q2

REPORT INFORMATION
  Report Type: Spontaneous
  Country: JP (occurrence: JP)
  Receive Date: 20160610
  Receipt Date: 20160610
  Transmission Date: 20160815
  Serious: Yes (Other)
  Sender: FDA-Public Use
  Company Number: JP-ROCHE-1697914

PATIENT
  Age: 76 Year
  Sex: Female

DRUGS (6)
  1. CEREGASRON [Concomitant]
     Active Substance: IRSOGLADINE MALEATE
     Indication: GASTROOESOPHAGEAL REFLUX DISEASE
     Route: 048
     Dates: start: 20120704
  2. LANSOPRAZOLE. [Concomitant]
     Active Substance: LANSOPRAZOLE
     Indication: GASTROOESOPHAGEAL REFLUX DISEASE
     Route: 048
     Dates: start: 20120704
  3. CRAVIT [Suspect]
     Active Substance: LEVOFLOXACIN
     Indication: INFECTION
     Route: 048
     Dates: start: 20151205, end: 20151206
  4. BONVIVA [Suspect]
     Active Substance: IBANDRONATE SODIUM
     Indication: OSTEOPOROSIS
     Route: 042
     Dates: start: 20140207, end: 20151205
  5. FEBURIC [Concomitant]
     Active Substance: FEBUXOSTAT
     Route: 048
     Dates: start: 20150302
  6. EDIROL [Concomitant]
     Active Substance: ELDECALCITOL
     Indication: OSTEOPOROSIS
     Route: 048
     Dates: start: 20140207

REACTIONS (12)
  - Induration [Recovering/Resolving]
  - Rash generalised [Recovered/Resolved]
  - Gout [Not Recovered/Not Resolved]
  - Infusion site extravasation [Recovered/Resolved]
  - Swelling [Unknown]
  - Erythema [Unknown]
  - Infection [Unknown]
  - Feeling hot [Unknown]
  - Scar [Unknown]
  - Blister [Unknown]
  - Generalised erythema [Unknown]
  - Arthralgia [Unknown]

NARRATIVE: CASE EVENT DATE: 20150302
